FAERS Safety Report 17238079 (Version 1)
Quarter: 2020Q1

REPORT INFORMATION
  Report Type: Spontaneous
  Country: US (occurrence: US)
  Receive Date: 20200106
  Receipt Date: 20200106
  Transmission Date: 20200409
  Serious: No
  Sender: FDA-Public Use
  Company Number: US-PACIRA-201900238

PATIENT
  Age: 51 Year
  Sex: Male

DRUGS (3)
  1. EXPAREL [Suspect]
     Active Substance: BUPIVACAINE
     Indication: POSTOPERATIVE ANALGESIA
     Dosage: 266 MG OF LIPOSOMAL BUPIVACAINE 20 ML
  2. FENTANYL. [Concomitant]
     Active Substance: FENTANYL
     Indication: PAIN MANAGEMENT
     Route: 042
  3. BUPIVACAINE. [Concomitant]
     Active Substance: BUPIVACAINE
     Indication: POSTOPERATIVE ANALGESIA

REACTIONS (3)
  - Labelled drug-drug interaction medication error [Unknown]
  - No adverse event [Unknown]
  - Inadequate analgesia [Unknown]
